FAERS Safety Report 8969483 (Version 1)
Quarter: 2012Q4

REPORT INFORMATION
  Report Type: 
  Country: US (occurrence: US)
  Receive Date: 20121218
  Receipt Date: 20121218
  Transmission Date: 20130627
  Serious: No
  Sender: FDA-Public Use
  Company Number: US-BRISTOL-MYERS SQUIBB COMPANY-16256166

PATIENT
  Age: 40 Year
  Sex: Female

DRUGS (2)
  1. ABILIFY [Suspect]
     Dates: start: 201109
  2. ZOLOFT [Concomitant]

REACTIONS (3)
  - Menstruation irregular [Unknown]
  - Irritability [Unknown]
  - Cough [Unknown]
